FAERS Safety Report 9973377 (Version 7)
Quarter: 2014Q2

REPORT INFORMATION
  Report Type: Spontaneous
  Country: JP (occurrence: JP)
  Receive Date: 20140306
  Receipt Date: 20140422
  Transmission Date: 20141212
  Serious: Yes (Death, Hospitalization, Other)
  Sender: FDA-Public Use
  Company Number: JP-JNJFOC-20140204567

PATIENT
  Age: 33 Year
  Sex: Female

DRUGS (2)
  1. XEPLION [Suspect]
     Indication: SCHIZOPHRENIA
     Route: 030
     Dates: start: 20140124, end: 2014
  2. XEPLION [Suspect]
     Indication: SCHIZOPHRENIA
     Route: 030
     Dates: start: 20140117, end: 20140117

REACTIONS (6)
  - Death [Fatal]
  - Neuroleptic malignant syndrome [Unknown]
  - Pneumonia [Unknown]
  - Emphysema [Unknown]
  - Dyspepsia [Unknown]
  - Collagen disorder [Unknown]
